FAERS Safety Report 6568062-3 (Version None)
Quarter: 2010Q1

REPORT INFORMATION
  Report Type: 
  Country: None (occurrence: None)
  Receive Date: 20100129
  Receipt Date: 20100113
  Transmission Date: 20100710
  Serious: Yes (Other)
  Sender: FDA-Public Use
  Company Number: 2009AC000430

PATIENT
  Age: 75 Year
  Sex: Female

DRUGS (13)
  1. DIGOXIN [Suspect]
     Dosage: 0.125 MG; PO
     Route: 048
     Dates: start: 20010101, end: 20080101
  2. PROPRANOLOL [Concomitant]
  3. HYDROCHLOROTHIAZIDE [Concomitant]
  4. WARFARIN SODIUM [Concomitant]
  5. BENAZEPRIL HYDROCHLORIDE [Concomitant]
  6. SIMVASTATIN [Concomitant]
  7. CALCIUM [Concomitant]
  8. VITAMIN D [Concomitant]
  9. BENAZEPRIL HYDROCHLORIDE [Concomitant]
  10. HYDROCHLOROTHIAZIDE [Concomitant]
  11. WARFARIN SODIUM [Concomitant]
  12. SIMVASTATIN [Concomitant]
  13. PROPRANOLOL [Concomitant]

REACTIONS (18)
  - ARRHYTHMIA [None]
  - ATRIAL FIBRILLATION [None]
  - COUGH [None]
  - DIZZINESS [None]
  - ECONOMIC PROBLEM [None]
  - ESSENTIAL HYPERTENSION [None]
  - FATIGUE [None]
  - FEAR [None]
  - HEADACHE [None]
  - HEPATOMEGALY [None]
  - HYPERTENSION [None]
  - INCREASED UPPER AIRWAY SECRETION [None]
  - INSOMNIA [None]
  - MULTIPLE INJURIES [None]
  - NASOPHARYNGITIS [None]
  - PALPITATIONS [None]
  - PRESYNCOPE [None]
  - PYREXIA [None]
